FAERS Safety Report 5196452-2 (Version None)
Quarter: 2006Q4

REPORT INFORMATION
  Report Type: 
  Country: None (occurrence: None)
  Receive Date: 20061226
  Receipt Date: 20061212
  Transmission Date: 20070319
  Serious: Yes (Hospitalization)
  Sender: FDA-Public Use
  Company Number: 2006002207

PATIENT
  Age: 55 Year
  Sex: Male

DRUGS (6)
  1. ERLOTINIB(TABLET) [Suspect]
     Indication: NON-SMALL CELL LUNG CANCER
     Dosage: 150 MG (QD) ORAL
     Route: 048
     Dates: start: 20060703, end: 20061107
  2. BEVACIZUMAB (INJECTION FOR INFUSION) [Suspect]
     Indication: NON-SMALL CELL LUNG CANCER
     Dosage: 1140 MG (Q 3 WK) INTRAVENOUS
     Route: 042
     Dates: start: 20060703, end: 20061017
  3. OXYCONTIN [Concomitant]
  4. NEXIUM [Concomitant]
  5. BRUFEN RETARD (IBUPROFEN) [Concomitant]
  6. IBUPROFEN [Concomitant]

REACTIONS (1)
  - PAIN [None]
